FAERS Safety Report 23603470 (Version 1)
Quarter: 2024Q1

REPORT INFORMATION
  Report Type: Spontaneous
  Country: CN (occurrence: CN)
  Receive Date: 20240307
  Receipt Date: 20240307
  Transmission Date: 20240409
  Serious: Yes (Hospitalization, Other)
  Sender: FDA-Public Use
  Company Number: CN-QILU PHARMACEUTICAL (HAINAN) CO.  LTD.-QLH-000025-2024

PATIENT
  Age: 36 Year
  Sex: Male

DRUGS (8)
  1. DECITABINE [Suspect]
     Active Substance: DECITABINE
     Indication: Acute myeloid leukaemia
     Dosage: 40 GM PER DAY
     Route: 065
  2. VENETOCLAX [Suspect]
     Active Substance: VENETOCLAX
     Indication: Acute myeloid leukaemia
     Dosage: 100 MG
     Route: 065
  3. VORICONAZOLE [Suspect]
     Active Substance: VORICONAZOLE
     Indication: Acute myeloid leukaemia
     Dosage: 300 MG EVERY 12 HOUR
     Route: 065
  4. MEROPENEM [Concomitant]
     Active Substance: MEROPENEM
     Dosage: 1000 MG EVERY 8 HOURS
     Route: 065
  5. LINEZOLID [Concomitant]
     Active Substance: LINEZOLID
     Dosage: 600 MG EVERY 12 HOUR
     Route: 065
  6. ALLOPURINOL [Concomitant]
     Active Substance: ALLOPURINOL
     Indication: Product used for unknown indication
     Dosage: UNK, ORAL
     Route: 048
  7. SODIUM BICARBONATE [Concomitant]
     Active Substance: SODIUM BICARBONATE
     Indication: Product used for unknown indication
     Dosage: UNK
     Route: 048
  8. TRETINOIN [Concomitant]
     Active Substance: TRETINOIN
     Dosage: 10 TABLETS DAILY
     Route: 065

REACTIONS (2)
  - Tumour lysis syndrome [Recovered/Resolved]
  - Off label use [Recovered/Resolved]
